FAERS Safety Report 6937704-2 (Version None)
Quarter: 2010Q3

REPORT INFORMATION
  Report Type: 
  Country: None (occurrence: None)
  Receive Date: 20100823
  Receipt Date: 20100823
  Transmission Date: 20110219
  Serious: No
  Sender: FDA-Public Use
  Company Number: None

PATIENT
  Age: 60 Year
  Sex: Male

DRUGS (1)
  1. OXYCODONE HCL [Suspect]
     Indication: METASTASES TO SPINE
     Dosage: 15 ORAL
     Route: 048
     Dates: start: 20100816, end: 20100819

REACTIONS (3)
  - FLASHBACK [None]
  - HALLUCINATION [None]
  - NIGHTMARE [None]
